FAERS Safety Report 8072775-4 (Version None)
Quarter: 2011Q4

REPORT INFORMATION
  Report Type: 
  Country: None (occurrence: None)
  Receive Date: 20111221
  Receipt Date: 20110615
  Transmission Date: 20120403
  Serious: Yes (Death)
  Sender: FDA-Public Use
  Company Number: PHHY2010US49924

PATIENT
  Sex: Male

DRUGS (1)
  1. EXJADE [Suspect]
     Indication: LYMPHOMA
     Dosage: 2000 MG, QD, ORAL
     Route: 048
     Dates: start: 20091119, end: 20110523

REACTIONS (4)
  - NEOPLASM PROGRESSION [None]
  - PAIN [None]
  - DIARRHOEA [None]
  - NEOPLASM MALIGNANT [None]
